FAERS Safety Report 20419564 (Version 1)
Quarter: 2022Q1

REPORT INFORMATION
  Report Type: Other
  Country: PH (occurrence: None)
  Receive Date: 20220203
  Receipt Date: 20220203
  Transmission Date: 20220424
  Serious: Yes (Other)
  Sender: FDA-Public Use
  Company Number: PH-ROCHE-3002371

PATIENT
  Age: 42 Year
  Sex: Male

DRUGS (1)
  1. ALECENSA [Suspect]
     Active Substance: ALECTINIB HYDROCHLORIDE
     Indication: Lung neoplasm malignant
     Dosage: RESPONDENT TAKES TWO PILLS AT MORNING EVENING EACH (TOTAL OF 600MG DAILY), ONGOING YES
     Route: 065
     Dates: start: 20210430

REACTIONS (4)
  - Seizure [Unknown]
  - Lung disorder [Unknown]
  - Drug ineffective [Unknown]
  - Off label use [Unknown]

NARRATIVE: CASE EVENT DATE: 20220101
